FAERS Safety Report 9762168 (Version 2)
Quarter: 2014Q1

REPORT INFORMATION
  Report Type: Spontaneous
  Country: US (occurrence: US)
  Receive Date: 20131216
  Receipt Date: 20140116
  Transmission Date: 20141002
  Serious: No
  Sender: FDA-Public Use
  Company Number: US-BIOGENIDEC-2013BI106687

PATIENT
  Sex: Female

DRUGS (9)
  1. TECFIDERA [Suspect]
     Indication: MULTIPLE SCLEROSIS
     Route: 048
     Dates: start: 20131011
  2. TECFIDERA [Suspect]
     Indication: MULTIPLE SCLEROSIS
     Route: 048
     Dates: start: 20131011
  3. AMITRIPTYLINE HCL [Concomitant]
  4. BACLOFEN [Concomitant]
  5. CITALOPRAM HYDROBROMIDE [Concomitant]
  6. OXYBUTYNIN CHLORIDE [Concomitant]
  7. PRIMIDONE [Concomitant]
  8. TIZANIDINE HCL [Concomitant]
  9. GABAPENTIN [Concomitant]

REACTIONS (2)
  - Eye pruritus [Unknown]
  - Flushing [Unknown]
